FAERS Safety Report 14826611 (Version 1)
Quarter: 2018Q2

REPORT INFORMATION
  Report Type: Spontaneous
  Country: PE (occurrence: PE)
  Receive Date: 20180430
  Receipt Date: 20180430
  Transmission Date: 20180711
  Serious: Yes (Life-Threatening, Hospitalization, Other)
  Sender: FDA-Public Use
  Company Number: PE-BAYER-2018-077544

PATIENT
  Age: 18 Year
  Sex: Male

DRUGS (2)
  1. APRONAX 100 MG [Suspect]
     Active Substance: NAPROXEN SODIUM
     Indication: PAIN
  2. APRONAX 100 MG [Suspect]
     Active Substance: NAPROXEN SODIUM
     Indication: MALAISE
     Dosage: 2 DF, UNK
     Dates: start: 201802

REACTIONS (8)
  - Nausea [None]
  - Anaemia [None]
  - Abdominal pain upper [None]
  - Faeces discoloured [None]
  - Haemorrhage [None]
  - Intestinal perforation [None]
  - Feeling abnormal [None]
  - Vomiting [None]

NARRATIVE: CASE EVENT DATE: 201802
